FAERS Safety Report 21023078 (Version 1)
Quarter: 2022Q2

REPORT INFORMATION
  Report Type: Other
  Country: US (occurrence: None)
  Receive Date: 20220629
  Receipt Date: 20220629
  Transmission Date: 20220720
  Serious: Yes (Hospitalization)
  Sender: FDA-Public Use
  Company Number: US-ROCHE-3121078

PATIENT
  Age: 53 Year
  Sex: Female
  Weight: 102.15 kg

DRUGS (12)
  1. OCREVUS [Suspect]
     Active Substance: OCRELIZUMAB
     Indication: Primary progressive multiple sclerosis
     Dosage: ONGOING-YES
     Route: 042
     Dates: start: 201808
  2. KEPPRA [Concomitant]
     Active Substance: LEVETIRACETAM
  3. ZONISAMIDE [Concomitant]
     Active Substance: ZONISAMIDE
  4. IRON [Concomitant]
     Active Substance: IRON
  5. FLEXERIL [Concomitant]
     Active Substance: CYCLOBENZAPRINE HYDROCHLORIDE
  6. VITAMIN D3 [Concomitant]
     Active Substance: CHOLECALCIFEROL
  7. FLONASE [Concomitant]
     Active Substance: FLUTICASONE PROPIONATE
  8. KIRKLAND SIGNATURE ALLER-FEX [Concomitant]
  9. ACETAMINOPHEN [Concomitant]
     Active Substance: ACETAMINOPHEN
  10. VOLTAREN [Concomitant]
     Active Substance: DICLOFENAC SODIUM
  11. VITAMIN B COMPLEX [Concomitant]
     Active Substance: CYANOCOBALAMIN\DEXPANTHENOL\NIACINAMIDE\PYRIDOXINE HYDROCHLORIDE\RIBOFLAVIN 5^-PHOSPHATE SODIUM\THIA
  12. DEVICE [Concomitant]
     Active Substance: DEVICE

REACTIONS (5)
  - Gastrointestinal disorder [Recovering/Resolving]
  - Abscess [Recovered/Resolved]
  - White blood cell count decreased [Recovered/Resolved]
  - Sleep apnoea syndrome [Not Recovered/Not Resolved]
  - Seizure [Unknown]

NARRATIVE: CASE EVENT DATE: 20200301
